FAERS Safety Report 11474176 (Version 2)
Quarter: 2018Q1

REPORT INFORMATION
  Report Type: Spontaneous
  Country: US (occurrence: US)
  Receive Date: 20150908
  Receipt Date: 20180220
  Transmission Date: 20180508
  Serious: No
  Sender: FDA-Public Use
  Company Number: US-JAZZ-2014-US-001636

PATIENT
  Age: 16 Year
  Sex: Female
  Weight: 58.96 kg

DRUGS (11)
  1. NUVIGIL [Suspect]
     Active Substance: ARMODAFINIL
     Indication: NARCOLEPSY
     Dosage: UNK
  2. BIOTIN [Concomitant]
     Active Substance: BIOTIN
     Indication: PRODUCT USED FOR UNKNOWN INDICATION
  3. XYREM [Suspect]
     Active Substance: SODIUM OXYBATE
     Indication: NARCOLEPSY
     Dosage: 4.5 G, BID
     Route: 048
     Dates: start: 20131220, end: 2014
  4. NUVIGIL [Suspect]
     Active Substance: ARMODAFINIL
     Dosage: 75 MG, QD
     Route: 048
     Dates: start: 2013
  5. XYREM [Suspect]
     Active Substance: SODIUM OXYBATE
     Dosage: 4-4.5 G, FIRST DOSE
     Route: 048
     Dates: start: 2014
  6. PROZAC [Suspect]
     Active Substance: FLUOXETINE HYDROCHLORIDE
     Indication: ANXIETY
     Dosage: 5 MG, QD
     Route: 048
     Dates: start: 20140114, end: 2014
  7. DULERA [Concomitant]
     Active Substance: FORMOTEROL FUMARATE DIHYDRATE\MOMETASONE FUROATE
     Indication: ASTHMA
  8. XYREM [Suspect]
     Active Substance: SODIUM OXYBATE
     Dosage: 3.75-4 G, SECOND DOSE
     Route: 048
     Dates: start: 2014
  9. BIRTH CONTROL PILLS [Concomitant]
     Active Substance: UNSPECIFIED INGREDIENT
     Indication: ACNE
     Dosage: UNK
  10. XANAX [Concomitant]
     Active Substance: ALPRAZOLAM
     Indication: ANXIETY
     Dosage: UNK
     Route: 048
  11. PROVIGIL [Concomitant]
     Active Substance: MODAFINIL
     Indication: NARCOLEPSY
     Dosage: UNK

REACTIONS (14)
  - Tachycardia [Recovered/Resolved]
  - Palpitations [Recovering/Resolving]
  - Blood pressure fluctuation [Recovering/Resolving]
  - Dizziness [Recovered/Resolved]
  - Dehydration [Recovering/Resolving]
  - Panic attack [Recovering/Resolving]
  - Dyspnoea [Recovered/Resolved]
  - Product use issue [Unknown]
  - Vocal cord dysfunction [Recovered/Resolved]
  - Anxiety [Unknown]
  - Vision blurred [Recovering/Resolving]
  - Diplopia [Recovering/Resolving]
  - Weight decreased [Recovered/Resolved]
  - Somnolence [Recovering/Resolving]

NARRATIVE: CASE EVENT DATE: 201312
